FAERS Safety Report 6107856-5 (Version None)
Quarter: 2009Q1

REPORT INFORMATION
  Report Type: 
  Country: None (occurrence: None)
  Receive Date: 20090309
  Receipt Date: 20090127
  Transmission Date: 20090719
  Serious: No
  Sender: FDA-Public Use
  Company Number: US-BAYER-200912386NA

PATIENT
  Age: 17 Year
  Sex: Female
  Weight: 60 kg

DRUGS (4)
  1. ULTRAVIST 370 [Suspect]
     Indication: COMPUTERISED TOMOGRAM ABDOMEN
     Dosage: TOTAL DAILY DOSE: 80 ML  UNIT DOSE: 500 ML
     Route: 042
     Dates: start: 20090127, end: 20090127
  2. ULTRAVIST 370 [Suspect]
     Route: 048
     Dates: start: 20090127, end: 20090127
  3. ASACOL [Concomitant]
  4. MEPERITAB [Concomitant]

REACTIONS (2)
  - PRURITUS [None]
  - URTICARIA [None]
